FAERS Safety Report 25820739 (Version 1)
Quarter: 2025Q3

REPORT INFORMATION
  Report Type: Spontaneous
  Country: US (occurrence: US)
  Receive Date: 20250919
  Receipt Date: 20250919
  Transmission Date: 20251021
  Serious: No
  Sender: GLAXOSMITHKLINE
  Company Number: US-GSK-US2025AMR109584

PATIENT
  Sex: Female

DRUGS (2)
  1. BENLYSTA [Suspect]
     Active Substance: BELIMUMAB
     Indication: Systemic lupus erythematosus
     Dosage: 200 MG, WE
     Dates: start: 202407
  2. BENLYSTA [Suspect]
     Active Substance: BELIMUMAB
     Indication: Palmoplantar pustulosis

REACTIONS (2)
  - Infection [Unknown]
  - Product use in unapproved indication [Unknown]
